FAERS Safety Report 7623036-6 (Version None)
Quarter: 2011Q3

REPORT INFORMATION
  Report Type: 
  Country: None (occurrence: None)
  Receive Date: 20110720
  Receipt Date: 20110707
  Transmission Date: 20111222
  Serious: Yes (Death)
  Sender: FDA-Public Use
  Company Number: US-PFIZER INC-2010000613

PATIENT
  Age: 45 Year
  Sex: Female

DRUGS (3)
  1. DOXEPIN HCL [Suspect]
     Dosage: UNK
     Route: 048
     Dates: end: 20080101
  2. METHADONE [Suspect]
     Dosage: UNK
     Route: 048
     Dates: end: 20080101
  3. CITALOPRAM [Suspect]
     Dosage: UNK
     Route: 048
     Dates: end: 20080101

REACTIONS (1)
  - DRUG ABUSE [None]
